FAERS Safety Report 13020480 (Version 2)
Quarter: 2016Q4

REPORT INFORMATION
  Report Type: Report from Study
  Country: US (occurrence: US)
  Receive Date: 20161212
  Receipt Date: 20161215
  Transmission Date: 20170207
  Serious: Yes (Death, Hospitalization, Other)
  Sender: FDA-Public Use
  Company Number: US-ACTELION-A-NJ2016-146747

PATIENT
  Age: 49 Year
  Sex: Female

DRUGS (13)
  1. METHOTREXATE. [Concomitant]
     Active Substance: METHOTREXATE
  2. MULTIVITAMIN [Concomitant]
     Active Substance: VITAMINS
  3. PROLIA [Concomitant]
     Active Substance: DENOSUMAB
  4. NEXIUM [Concomitant]
     Active Substance: ESOMEPRAZOLE MAGNESIUM
  5. FOLIC ACID. [Concomitant]
     Active Substance: FOLIC ACID
  6. VELETRI [Suspect]
     Active Substance: EPOPROSTENOL
     Indication: PULMONARY HYPERTENSION
     Dosage: 52 NG/KG, PER MIN
     Route: 042
     Dates: start: 20150127
  7. PLAQUENIL [Concomitant]
     Active Substance: HYDROXYCHLOROQUINE SULFATE
  8. TOLTERODINE [Concomitant]
     Active Substance: TOLTERODINE
  9. CYMBALTA [Concomitant]
     Active Substance: DULOXETINE HYDROCHLORIDE
  10. PREDNISONE. [Concomitant]
     Active Substance: PREDNISONE
  11. METOPROLOL. [Concomitant]
     Active Substance: METOPROLOL
  12. LETAIRIS [Concomitant]
     Active Substance: AMBRISENTAN
  13. SILDENAFIL CITRATE. [Concomitant]
     Active Substance: SILDENAFIL CITRATE

REACTIONS (4)
  - Upper respiratory tract infection [Unknown]
  - Respiratory failure [Fatal]
  - Spinal fracture [Unknown]
  - Blood culture positive [Unknown]

NARRATIVE: CASE EVENT DATE: 20161206
